FAERS Safety Report 5083441-1 (Version None)
Quarter: 2006Q3

REPORT INFORMATION
  Report Type: 
  Country: None (occurrence: None)
  Receive Date: 20060818
  Receipt Date: 20060728
  Transmission Date: 20061208
  Serious: Yes (Death)
  Sender: FDA-Public Use
  Company Number: JP-NOVOPROD-255652

PATIENT
  Age: 52 Year
  Sex: Male

DRUGS (7)
  1. NOVOSEVEN [Suspect]
     Indication: HAEMORRHAGE
     Dosage: 4.8 MG, TID
     Route: 042
     Dates: start: 20060714, end: 20060714
  2. NOVOSEVEN [Suspect]
     Dosage: 4.8 MG, SINGLE
     Route: 042
     Dates: start: 20060726, end: 20060726
  3. PREDONINE                          /00016203/ [Concomitant]
     Dosage: 60 MG, QD
     Route: 042
     Dates: start: 20060701
  4. SOLU-MEDROL [Concomitant]
     Dosage: 1 G FOR 3 DAYS
     Route: 042
     Dates: start: 20060713, end: 20060719
  5. GASTER [Concomitant]
     Dosage: 40 MG, QD
     Route: 042
     Dates: start: 20060714, end: 20060726
  6. ADONA [Concomitant]
     Dosage: 25 MG, QD
     Route: 042
     Dates: start: 20060714, end: 20060726
  7. TRANSAMIN [Concomitant]
     Indication: HAEMORRHAGE SUBCUTANEOUS
     Dosage: 1 G, QD
     Route: 042
     Dates: start: 20060714, end: 20060726

REACTIONS (2)
  - LUNG INFECTION PSEUDOMONAL [None]
  - PNEUMONIA [None]
